FAERS Safety Report 22287085 (Version 18)
Quarter: 2025Q4

REPORT INFORMATION
  Report Type: Spontaneous
  Country: CA (occurrence: CA)
  Receive Date: 20230505
  Receipt Date: 20251104
  Transmission Date: 20260118
  Serious: Yes (Hospitalization, Other)
  Sender: PFIZER
  Company Number: CA-PFIZER INC-202300178052

PATIENT
  Age: 40 Year
  Sex: Female

DRUGS (16)
  1. ABRILADA [Suspect]
     Active Substance: ADALIMUMAB-AFZB
     Indication: Hidradenitis
     Dosage: 1 DF, 160MG AT WEEK 0, 80MG AT WEEK 2, THEN 40MG EVERY WEEK
     Route: 058
     Dates: start: 20230501
  2. ABRILADA [Suspect]
     Active Substance: ADALIMUMAB-AFZB
     Indication: Anal abscess
     Dosage: 80 MG AFTER 2 WEEKS (160MG AT WEEK 0, 80MG AT WEEK 2, THEN 40MG EVERY WEEK)
     Route: 058
     Dates: start: 20230515
  3. ABRILADA [Suspect]
     Active Substance: ADALIMUMAB-AFZB
     Indication: Rectal abscess
     Dosage: 40 MG (WEEK 4, 160MG AT WEEK 0, 80MG AT WEEK 2, THEN 40MG EVERY WEEK)
     Route: 058
     Dates: start: 20230530
  4. ABRILADA [Suspect]
     Active Substance: ADALIMUMAB-AFZB
     Dosage: 40 MG, WEEKLY (EVERY WEEK)
     Route: 058
     Dates: start: 20230605
  5. ABRILADA [Suspect]
     Active Substance: ADALIMUMAB-AFZB
     Dosage: 40 MG, WEEKLY
     Route: 058
     Dates: start: 20230612
  6. ABRILADA [Suspect]
     Active Substance: ADALIMUMAB-AFZB
     Dosage: 40 MG, WEEKLY
     Route: 058
     Dates: start: 20230731, end: 20230731
  7. ABRILADA [Suspect]
     Active Substance: ADALIMUMAB-AFZB
     Dosage: 4 WEEKS AFTER THE LAST INFUSION
     Route: 058
     Dates: start: 20230828
  8. ABRILADA [Suspect]
     Active Substance: ADALIMUMAB-AFZB
     Dosage: 40 MG, WEEKLY
     Route: 058
     Dates: start: 20230905
  9. ABRILADA [Suspect]
     Active Substance: ADALIMUMAB-AFZB
     Dosage: 160MG AT WEEK 0, 80MG AT WEEK 2, THEN 40MG EVERY WEEK - PREFILLED PEN
     Route: 058
     Dates: start: 20230911
  10. ABRILADA [Suspect]
     Active Substance: ADALIMUMAB-AFZB
     Dosage: 160MG AT WEEK 0, 80MG AT WEEK 2, THEN 40MG EVERY WEEK - PREFILLED PEN
     Route: 058
     Dates: start: 20230918
  11. ABRILADA [Suspect]
     Active Substance: ADALIMUMAB-AFZB
     Dosage: 1 DF, 160MG AT WEEK 0, 80MG AT WEEK 2, THEN 40MG EVERY WEEK
     Route: 058
     Dates: start: 20230925
  12. ABRILADA [Suspect]
     Active Substance: ADALIMUMAB-AFZB
     Dosage: 40MG WEEKLY (40MG AFTER 1 WEEK AND 1 DAY)
     Route: 058
     Dates: start: 20231003
  13. CLINDAMYCIN [Concomitant]
     Active Substance: CLINDAMYCIN
     Dosage: UNK
  14. CLINDAMYCIN [Concomitant]
     Active Substance: CLINDAMYCIN
     Dosage: 300 MG
  15. ROFACT [Concomitant]
     Dosage: UNK
  16. ROFACT [Concomitant]
     Dosage: 300 MG

REACTIONS (40)
  - Respiratory tract infection viral [Recovering/Resolving]
  - Dyspnoea [Recovering/Resolving]
  - Bronchospasm [Recovering/Resolving]
  - Bronchitis [Recovering/Resolving]
  - Asthma [Recovering/Resolving]
  - Anorectal disorder [Not Recovered/Not Resolved]
  - Procedural haemorrhage [Recovered/Resolved]
  - Anal abscess [Recovered/Resolved]
  - Rectal haemorrhage [Not Recovered/Not Resolved]
  - Therapeutic response unexpected [Unknown]
  - Injection site warmth [Not Recovered/Not Resolved]
  - Injection site bruising [Not Recovered/Not Resolved]
  - Abdominal pain [Recovered/Resolved]
  - Abdominal pain upper [Not Recovered/Not Resolved]
  - Diarrhoea [Recovered/Resolved]
  - Injection site erythema [Not Recovered/Not Resolved]
  - Injection site oedema [Not Recovered/Not Resolved]
  - Injection site pain [Unknown]
  - Injection site pruritus [Recovered/Resolved]
  - Injection site rash [Recovered/Resolved]
  - Injection site reaction [Recovered/Resolved]
  - Nausea [Recovered/Resolved]
  - Pain in extremity [Unknown]
  - Erythema [Recovered/Resolved]
  - Oedema [Recovered/Resolved]
  - Pruritus [Not Recovered/Not Resolved]
  - Skin fragility [Unknown]
  - Haemorrhoids [Not Recovered/Not Resolved]
  - Nodule [Recovered/Resolved]
  - Cough [Not Recovered/Not Resolved]
  - Asthenia [Not Recovered/Not Resolved]
  - Blister [Unknown]
  - Abscess [Recovered/Resolved]
  - Condition aggravated [Recovered/Resolved]
  - Rash [Not Recovered/Not Resolved]
  - Proctalgia [Not Recovered/Not Resolved]
  - Fatigue [Not Recovered/Not Resolved]
  - Diarrhoea [Not Recovered/Not Resolved]
  - Injection site induration [Not Recovered/Not Resolved]
  - Dry skin [Recovered/Resolved]

NARRATIVE: CASE EVENT DATE: 20230101
